FAERS Safety Report 19836240 (Version 2)
Quarter: 2021Q4

REPORT INFORMATION
  Report Type: Spontaneous
  Country: US (occurrence: US)
  Receive Date: 20210916
  Receipt Date: 20211006
  Transmission Date: 20220303
  Serious: Yes (Other)
  Sender: FDA-Public Use
  Company Number: US-CIPLA LTD.-2021US06162

PATIENT

DRUGS (2)
  1. GABAPENTIN [Suspect]
     Active Substance: GABAPENTIN
     Indication: Epilepsy
     Dosage: 300 MILLIGRAM, QID
     Route: 065
  2. GABAPENTIN [Suspect]
     Active Substance: GABAPENTIN
     Indication: Seizure

REACTIONS (3)
  - Drug ineffective [Not Recovered/Not Resolved]
  - Seizure [Unknown]
  - Product formulation issue [Unknown]

NARRATIVE: CASE EVENT DATE: 20210801
